FAERS Safety Report 11842938 (Version 1)
Quarter: 2015Q4

REPORT INFORMATION
  Report Type: Spontaneous
  Country: US (occurrence: US)
  Receive Date: 20151216
  Receipt Date: 20151216
  Transmission Date: 20160305
  Serious: No
  Sender: FDA-Public Use
  Company Number: US-PFIZER INC-2015438995

PATIENT
  Age: 51 Year
  Sex: Female
  Weight: 73 kg

DRUGS (3)
  1. VELETRI [Suspect]
     Active Substance: EPOPROSTENOL
     Route: 042
  2. ALDACTONE [Suspect]
     Active Substance: SPIRONOLACTONE
     Indication: URINE ANALYSIS ABNORMAL
     Dosage: 100 MG, TOOK 2 OF THEM PER DAY
  3. DEMADEX [Suspect]
     Active Substance: TORSEMIDE
     Indication: URINE ANALYSIS ABNORMAL
     Dosage: 40 MG, 1X/DAY
     Route: 048

REACTIONS (5)
  - Condition aggravated [Not Recovered/Not Resolved]
  - Sluggishness [Not Recovered/Not Resolved]
  - Dyspnoea [Not Recovered/Not Resolved]
  - Malaise [Not Recovered/Not Resolved]
  - Oedema [Not Recovered/Not Resolved]
